FAERS Safety Report 8260807 (Version 16)
Quarter: 2012Q4

REPORT INFORMATION
  Report Type: 
  Country: US (occurrence: US)
  Receive Date: 20111123
  Receipt Date: 20121227
  Transmission Date: 20130627
  Serious: Yes (Life-Threatening, Hospitalization, Congenital Anomaly, Other)
  Sender: FDA-Public Use
  Company Number: US-PFIZER INC-2012098735

PATIENT
  Sex: Male
  Weight: 3.22 kg

DRUGS (18)
  1. AZITHROMYCIN [Suspect]
     Indication: DRUG EXPOSURE IN UTERO
     Dosage: UNK
     Route: 064
     Dates: start: 20100325
  2. IBUPROFEN [Suspect]
     Indication: DRUG EXPOSURE IN UTERO
     Dosage: UNK
     Route: 064
     Dates: start: 20100325
  3. SUMATRIPTAN SUCCINATE [Suspect]
     Indication: DRUG EXPOSURE IN UTERO
     Dosage: UNK
     Route: 064
     Dates: start: 20100325
  4. TOPAMAX [Suspect]
     Indication: MIGRAINE HEADACHE
     Dosage: 25 mg four times a day for 1 week
     Route: 064
     Dates: start: 201011
  5. TOPAMAX [Suspect]
     Indication: DRUG EXPOSURE IN UTERO
     Dosage: 25 mg two times a day for 1 week
     Route: 064
  6. TOPAMAX [Suspect]
     Dosage: 25 mg in the morning and 25 mg at night for 1 week
     Route: 064
  7. TOPAMAX [Suspect]
     Dosage: 25 mg two times a day
     Route: 064
     Dates: start: 20100315, end: 20100415
  8. FLEXERIL [Suspect]
     Indication: SCIATIC NERVE INJURY
     Dosage: 10 mg, 3x/day
     Route: 064
  9. FLEXERIL [Suspect]
     Indication: DRUG EXPOSURE IN UTERO
  10. NITROFURANTOIN [Suspect]
     Indication: DRUG EXPOSURE IN UTERO
     Dosage: 100 mg, UNK
     Route: 064
  11. PRENATAL VITAMINS [Suspect]
     Indication: DRUG EXPOSURE IN UTERO
     Dosage: UNK
     Route: 064
  12. CETIRIZINE HYDROCHLORIDE [Suspect]
     Indication: DRUG EXPOSURE IN UTERO
     Dosage: UNK
     Route: 064
     Dates: start: 20100325
  13. CHERACOL [Suspect]
     Indication: DRUG EXPOSURE IN UTERO
     Dosage: UNK
     Route: 064
     Dates: start: 20100325
  14. FLUTICASONE PROPIONATE [Suspect]
     Indication: DRUG EXPOSURE IN UTERO
     Dosage: UNK
     Route: 064
     Dates: start: 20100325
  15. NAPROXEN [Suspect]
     Indication: DRUG EXPOSURE IN UTERO
     Dosage: UNK
     Route: 064
     Dates: start: 20100325
  16. VICODIN [Suspect]
     Indication: DRUG EXPOSURE IN UTERO
     Dosage: UNK
     Route: 064
     Dates: start: 20100325
  17. AMOXYCILLIN [Suspect]
     Indication: DRUG EXPOSURE IN UTERO
     Dosage: UNK
     Route: 064
     Dates: start: 20100325
  18. OLOPATADINE HYDROCHLORIDE [Suspect]
     Indication: DRUG EXPOSURE IN UTERO
     Dosage: UNK
     Route: 064
     Dates: start: 20100325

REACTIONS (16)
  - Maternal exposure timing unspecified [Unknown]
  - Dysmorphism [Unknown]
  - Developmental delay [Recovering/Resolving]
  - Craniosynostosis [Unknown]
  - Pierre Robin syndrome [Recovering/Resolving]
  - Deafness [Unknown]
  - Glaucoma [Recovered/Resolved]
  - Cleft palate [Unknown]
  - Pneumonia aspiration [Unknown]
  - Bronchial hyperreactivity [Unknown]
  - Respiratory disorder [Unknown]
  - Torticollis [Recovered/Resolved]
  - Hyperbilirubinaemia [Unknown]
  - Gastrooesophageal reflux disease [Recovering/Resolving]
  - Exophthalmos [Unknown]
  - Brachycephaly [Unknown]
